FAERS Safety Report 8228382-3 (Version None)
Quarter: 2012Q1

REPORT INFORMATION
  Report Type: 
  Country: None (occurrence: None)
  Receive Date: 20120322
  Receipt Date: 20110816
  Transmission Date: 20120608
  Serious: Yes (Hospitalization)
  Sender: FDA-Public Use
  Company Number: US-BRISTOL-MYERS SQUIBB COMPANY-15974207

PATIENT
  Age: 59 Year
  Sex: Male
  Weight: 63 kg

DRUGS (5)
  1. ERBITUX [Suspect]
     Indication: TONSIL CANCER
     Dosage: NO OF DOSE:1
     Dates: start: 20110815
  2. NEBIVOLOL [Concomitant]
  3. LOMOTIL [Concomitant]
  4. MAGNESIUM HYDROXIDE TAB [Concomitant]
  5. LORAZEPAM [Concomitant]

REACTIONS (3)
  - CONFUSIONAL STATE [None]
  - PYREXIA [None]
  - ABDOMINAL PAIN [None]
